FAERS Safety Report 9289154 (Version 2)
Quarter: 2013Q4

REPORT INFORMATION
  Report Type: Spontaneous
  Country: GB (occurrence: GB)
  Receive Date: 20130514
  Receipt Date: 20131022
  Transmission Date: 20140711
  Serious: Yes (Hospitalization)
  Sender: FDA-Public Use
  Company Number: GB-BAXTER-2013BAX017161

PATIENT
  Age: 52 Year
  Sex: Female
  Weight: 69.85 kg

DRUGS (3)
  1. AERRANE (ISOFLURANE) [Suspect]
     Indication: ANAESTHESIA
     Route: 065
  2. ONDANSETRON HYDROCHLORIDE [Suspect]
     Indication: PROPHYLAXIS
     Route: 042
     Dates: start: 20130426, end: 20130426
  3. PROPOFOL-LIPURO [Suspect]
     Indication: GENERAL ANAESTHESIA
     Route: 042
     Dates: start: 20130426, end: 20130426

REACTIONS (6)
  - Hyperventilation [Recovered/Resolved]
  - Mutism [Recovered/Resolved]
  - Slow response to stimuli [Recovered/Resolved]
  - Aphasia [Recovered/Resolved]
  - Tearfulness [Recovered/Resolved]
  - Anterograde amnesia [Recovered/Resolved]
